FAERS Safety Report 23410313 (Version 2)
Quarter: 2024Q1

REPORT INFORMATION
  Report Type: Spontaneous
  Country: US (occurrence: US)
  Receive Date: 20240117
  Receipt Date: 20240222
  Transmission Date: 20240410
  Serious: No
  Sender: FDA-Public Use
  Company Number: US-LEX-000108

PATIENT
  Sex: Female

DRUGS (1)
  1. INPEFA [Suspect]
     Active Substance: SOTAGLIFLOZIN
     Indication: Cardiac failure congestive
     Route: 048
     Dates: start: 20231228

REACTIONS (8)
  - Conjunctivitis [Recovered/Resolved]
  - Eye pruritus [Unknown]
  - Ear infection [Recovered/Resolved]
  - Ocular hyperaemia [Unknown]
  - Eye swelling [Unknown]
  - Vision blurred [Unknown]
  - Lacrimation increased [Unknown]
  - Eye pain [Unknown]
